FAERS Safety Report 4846077-0 (Version None)
Quarter: 2005Q4

REPORT INFORMATION
  Report Type: 
  Country: None (occurrence: None)
  Receive Date: 20051201
  Receipt Date: 20051121
  Transmission Date: 20060501
  Serious: Yes (Other)
  Sender: FDA-Public Use
  Company Number: 2005039282

PATIENT
  Sex: Female

DRUGS (5)
  1. DOSTINEX [Suspect]
     Indication: ILL-DEFINED DISORDER
     Dosage: ORAL
     Route: 048
  2. VITAMINS (VITAMINS) [Concomitant]
  3. INIMUR (NIFURATEL) [Concomitant]
  4. MAGNESIUM (MAGNESIUM) [Concomitant]
  5. VITAFERRO (ASCORBIC ACID, FERROUS SULFATE) [Concomitant]

REACTIONS (6)
  - CAESAREAN SECTION [None]
  - DRUG EXPOSURE DURING PREGNANCY [None]
  - FUNGAL INFECTION [None]
  - PREGNANCY [None]
  - PREMATURE LABOUR [None]
  - PREMATURE SEPARATION OF PLACENTA [None]
